FAERS Safety Report 4923552-1 (Version None)
Quarter: 2006Q1

REPORT INFORMATION
  Report Type: 
  Country: None (occurrence: None)
  Receive Date: 20060227
  Receipt Date: 20060216
  Transmission Date: 20060701
  Serious: Yes (Hospitalization)
  Sender: FDA-Public Use
  Company Number: PHRM2006FR00808

PATIENT
  Age: 30 Year
  Sex: Male

DRUGS (4)
  1. TEGRETOL [Suspect]
     Indication: EPILEPSY
     Dosage: 800 MG, BID
     Route: 048
  2. KEPPRA [Suspect]
     Indication: EPILEPSY
     Dosage: 900 MG, BID
     Route: 048
  3. CLONAZEPAM [Suspect]
     Indication: EPILEPSY
     Dosage: 2 MG DAILY
     Route: 048
  4. GARDENAL [Suspect]
     Indication: EPILEPSY
     Dosage: 200 MG, BID
     Route: 048

REACTIONS (3)
  - ACCIDENTAL OVERDOSE [None]
  - ASTHENIA [None]
  - INAPPROPRIATE SCHEDULE OF DRUG ADMINISTRATION [None]
